FAERS Safety Report 7623769-1 (Version None)
Quarter: 2011Q3

REPORT INFORMATION
  Report Type: 
  Country: None (occurrence: None)
  Receive Date: 20110720
  Receipt Date: 20110712
  Transmission Date: 20111222
  Serious: Yes (Hospitalization)
  Sender: FDA-Public Use
  Company Number: JP-GLAXOSMITHKLINE-B0733265A

PATIENT
  Age: 72 Year
  Sex: Male

DRUGS (10)
  1. DEPAS [Concomitant]
     Route: 048
  2. PAXIL [Suspect]
     Indication: ANXIETY
     Dosage: 20MG PER DAY
     Route: 048
     Dates: start: 20110611
  3. ZYLORIC 100 [Suspect]
     Indication: GOUT
     Dosage: 100MG PER DAY
     Route: 048
  4. MUCOSTA [Concomitant]
     Route: 048
  5. MAALOX [Concomitant]
     Route: 048
  6. AMLODIPINE [Concomitant]
     Route: 048
  7. MUCOSOLVAN [Concomitant]
     Route: 048
  8. PURSENNID [Concomitant]
     Route: 048
  9. ULCERLMIN [Concomitant]
     Route: 048
  10. CLARITHROMYCIN [Concomitant]
     Route: 048

REACTIONS (1)
  - INTERSTITIAL LUNG DISEASE [None]
